FAERS Safety Report 18855661 (Version 1)
Quarter: 2021Q1

REPORT INFORMATION
  Report Type: Spontaneous
  Country: NO (occurrence: NO)
  Receive Date: 20210205
  Receipt Date: 20210205
  Transmission Date: 20210420
  Serious: Yes (Other)
  Sender: FDA-Public Use
  Company Number: NO-B.I. PHARMACEUTICALS,INC./RIDGEFIELD-2021-BI-079987

PATIENT
  Age: 35 Year
  Sex: Female

DRUGS (3)
  1. GILOTRIF [Suspect]
     Active Substance: AFATINIB
     Indication: EGFR GENE MUTATION
     Dosage: INITIALLY TOOK 40 AND 30 MG DAILY, AFTER 1,5 YEARS WEEKLY PULSED 240 MG
     Route: 065
  2. GILOTRIF [Suspect]
     Active Substance: AFATINIB
     Indication: NON-SMALL CELL LUNG CANCER
     Dosage: INITIALLY TOOK 40 AND 30 MG DAILY, AFTER 1,5 YEARS WEEKLY PULSED 240 MG
     Route: 065
  3. GILOTRIF [Suspect]
     Active Substance: AFATINIB
     Dosage: INITIALLY TOOK 40 AND 30 MG DAILY, AFTER 1,5 YEARS WEEKLY PULSED 240 MG
     Route: 065

REACTIONS (2)
  - Metastasis [Unknown]
  - Metastases to central nervous system [Unknown]

NARRATIVE: CASE EVENT DATE: 202012
